FAERS Safety Report 13494716 (Version 1)
Quarter: 2017Q2

REPORT INFORMATION
  Report Type: Spontaneous
  Country: US (occurrence: US)
  Receive Date: 20170428
  Receipt Date: 20170428
  Transmission Date: 20170830
  Serious: Yes (Hospitalization)
  Sender: FDA-Public Use
  Company Number: US-ACCORD-050869

PATIENT
  Age: 66 Year
  Sex: Male

DRUGS (2)
  1. NALTREXONE/NALTREXONE HYDROCHLORIDE [Suspect]
     Active Substance: NALTREXONE
     Indication: PRODUCT USED FOR UNKNOWN INDICATION
  2. OXYCODONE [Interacting]
     Active Substance: OXYCODONE
     Indication: MUSCULOSKELETAL PAIN

REACTIONS (3)
  - Drug interaction [Unknown]
  - Overdose [Unknown]
  - Unresponsive to stimuli [Recovering/Resolving]
